FAERS Safety Report 6237134-5 (Version None)
Quarter: 2009Q2

REPORT INFORMATION
  Report Type: 
  Country: None (occurrence: None)
  Receive Date: 20090619
  Receipt Date: 20090421
  Transmission Date: 20091009
  Serious: No
  Sender: FDA-Public Use
  Company Number: US-ASTRAZENECA-2009UW10128

PATIENT
  Age: 46 Year
  Sex: Female

DRUGS (2)
  1. SYMBICORT [Suspect]
     Route: 055
     Dates: start: 20090201
  2. SINGULAIR [Concomitant]

REACTIONS (5)
  - CHEST DISCOMFORT [None]
  - DYSPHONIA [None]
  - HEADACHE [None]
  - THROAT IRRITATION [None]
  - YAWNING [None]
